FAERS Safety Report 4938523-9 (Version None)
Quarter: 2006Q1

REPORT INFORMATION
  Report Type: 
  Country: None (occurrence: None)
  Receive Date: 20060302
  Receipt Date: 20060216
  Transmission Date: 20060701
  Serious: Yes (Disabling)
  Sender: FDA-Public Use
  Company Number: ST-2005-008593

PATIENT
  Age: 66 Year
  Sex: Male
  Weight: 54.3 kg

DRUGS (20)
  1. OLMESARTAN [Suspect]
     Indication: DIABETES MELLITUS NON-INSULIN-DEPENDENT
     Dosage: 10 MG QD PO
     Route: 048
     Dates: start: 20050610, end: 20050721
  2. OLMESARTAN [Suspect]
     Indication: DIABETIC NEPHROPATHY
     Dosage: 10 MG QD PO
     Route: 048
     Dates: start: 20050610, end: 20050721
  3. OLMESARTAN [Suspect]
     Indication: DIABETES MELLITUS NON-INSULIN-DEPENDENT
     Dosage: 20 MG QD PO
     Route: 048
     Dates: start: 20050722, end: 20050818
  4. OLMESARTAN [Suspect]
     Indication: DIABETIC NEPHROPATHY
     Dosage: 20 MG QD PO
     Route: 048
     Dates: start: 20050722, end: 20050818
  5. OLMESARTAN [Suspect]
     Indication: DIABETIC NEPHROPATHY
     Dosage: 40 MG QD PO
     Route: 048
     Dates: start: 20050819
  6. PLACEBO [Suspect]
     Dosage: PLACEBO
     Dates: start: 20050325, end: 20050609
  7. PLACEBO [Suspect]
     Dosage: 10 MG QD PO
     Route: 048
     Dates: start: 20050610, end: 20050721
  8. PLACEBO [Suspect]
     Dosage: 20 MG QD PO
     Route: 048
     Dates: start: 20050722, end: 20050818
  9. PLACEBO [Suspect]
     Dosage: 40 MG QD PO
     Route: 048
     Dates: start: 20050819
  10. AMLODIN [Concomitant]
  11. EPADEL [Concomitant]
  12. ALINAMIN F [Concomitant]
  13. DAONIL [Concomitant]
  14. KINEDAK [Concomitant]
  15. EUGLUCON [Concomitant]
  16. ARGAMATE [Concomitant]
  17. LIPOVAS [Concomitant]
  18. PL GRAN [Concomitant]
  19. CEFZON [Concomitant]
  20. MEDICON [Concomitant]

REACTIONS (2)
  - CEREBRAL INFARCTION [None]
  - MEMORY IMPAIRMENT [None]
